FAERS Safety Report 6950095-6 (Version None)
Quarter: 2010Q3

REPORT INFORMATION
  Report Type: 
  Country: None (occurrence: None)
  Receive Date: 20100828
  Receipt Date: 20100130
  Transmission Date: 20110219
  Serious: No
  Sender: FDA-Public Use
  Company Number: US-ABBOTT-09P-163-0592743-00

PATIENT
  Sex: Female
  Weight: 124.85 kg

DRUGS (11)
  1. NIASPAN [Suspect]
     Indication: LOW DENSITY LIPOPROTEIN INCREASED
     Route: 048
     Dates: start: 20090801
  2. NIASPAN [Suspect]
     Indication: BLOOD TRIGLYCERIDES INCREASED
     Route: 048
     Dates: end: 20090820
  3. NIASPAN [Suspect]
     Indication: HIGH DENSITY LIPOPROTEIN DECREASED
     Dates: start: 20090820, end: 20100129
  4. NIASPAN [Suspect]
     Dosage: 1500MG DAILY
     Dates: start: 20100129
  5. METFORMIN [Concomitant]
     Indication: PRODUCT USED FOR UNKNOWN INDICATION
  6. LISINOPRIL [Concomitant]
     Indication: PRODUCT USED FOR UNKNOWN INDICATION
  7. HYDROCHLOROTHIAZIDE [Concomitant]
     Indication: PRODUCT USED FOR UNKNOWN INDICATION
  8. ASPIRIN [Concomitant]
     Indication: PRODUCT USED FOR UNKNOWN INDICATION
     Dosage: 3 TABS AT BEDTIME
     Route: 048
     Dates: end: 20090821
  9. ASPIRIN [Concomitant]
     Dates: start: 20090821, end: 20090822
  10. ASPIRIN [Concomitant]
     Dates: start: 20090822
  11. GLIPIZIDE [Concomitant]
     Indication: PRODUCT USED FOR UNKNOWN INDICATION

REACTIONS (9)
  - ASTHENIA [None]
  - DIZZINESS [None]
  - DRY SKIN [None]
  - FLUSHING [None]
  - INSOMNIA [None]
  - PRURITUS [None]
  - SINUS DISORDER [None]
  - SKIN BURNING SENSATION [None]
  - SKIN DISCOLOURATION [None]
